FAERS Safety Report 19202341 (Version 3)
Quarter: 2022Q2

REPORT INFORMATION
  Report Type: Spontaneous
  Country: US (occurrence: US)
  Receive Date: 20210430
  Receipt Date: 20220411
  Transmission Date: 20220721
  Serious: Yes (Hospitalization, Other)
  Sender: FDA-Public Use
  Company Number: US-MLMSERVICE-20210416-2841676-1

PATIENT
  Age: 35 Year
  Sex: Male

DRUGS (3)
  1. BUPRENORPHINE [Suspect]
     Active Substance: BUPRENORPHINE
     Indication: Drug use disorder
     Dosage: UNK
     Route: 023
  2. GABAPENTIN [Concomitant]
     Active Substance: GABAPENTIN
     Indication: Drug use disorder
     Dosage: 600 MG, Q6H [4 TIMES DAILY]
  3. GABAPENTIN [Concomitant]
     Active Substance: GABAPENTIN
     Dosage: 600 MILLIGRAM, QID

REACTIONS (9)
  - Incorrect route of product administration [Recovered/Resolved]
  - Injection site ulcer [Recovered/Resolved with Sequelae]
  - Injection site necrosis [Recovered/Resolved with Sequelae]
  - Injection site swelling [Recovered/Resolved with Sequelae]
  - Withdrawal syndrome [Recovered/Resolved]
  - Skin exfoliation [Recovered/Resolved with Sequelae]
  - Eschar [Recovered/Resolved with Sequelae]
  - Wrong technique in product usage process [Recovered/Resolved]
  - Tachycardia [Recovered/Resolved]
